FAERS Safety Report 21982774 (Version 1)
Quarter: 2023Q1

REPORT INFORMATION
  Report Type: Spontaneous
  Country: JP (occurrence: JP)
  Receive Date: 20230213
  Receipt Date: 20230213
  Transmission Date: 20230418
  Serious: Yes (Other)
  Sender: FDA-Public Use
  Company Number: JP-AUROBINDO-AUR-APL-2023-006350

PATIENT
  Age: 87 Year
  Sex: Male

DRUGS (3)
  1. FOLOTYN [Suspect]
     Active Substance: PRALATREXATE
     Indication: Peripheral T-cell lymphoma unspecified recurrent
     Dosage: 30 MILLIGRAM/SQ. METER, EVERY WEEK
     Route: 042
  2. FOLOTYN [Suspect]
     Active Substance: PRALATREXATE
     Dosage: 24 MILLIGRAM/SQ. METER, EVERY WEEK
     Route: 042
  3. LEUCOVORIN [Concomitant]
     Active Substance: LEUCOVORIN
     Indication: Product used for unknown indication
     Dosage: UNK
     Route: 065

REACTIONS (5)
  - Malignant neoplasm progression [Unknown]
  - Herpes zoster [Unknown]
  - Stomatitis [Unknown]
  - Dermatitis [Unknown]
  - Pain in extremity [Unknown]
